FAERS Safety Report 11327929 (Version 2)
Quarter: 2015Q3

REPORT INFORMATION
  Report Type: Spontaneous
  Country: JP (occurrence: JP)
  Receive Date: 20150731
  Receipt Date: 20150814
  Transmission Date: 20151125
  Serious: Yes (Death, Hospitalization)
  Sender: FDA-Public Use
  Company Number: JP-PFIZER INC-2015256388

PATIENT
  Age: 62 Year
  Sex: Female
  Weight: 51 kg

DRUGS (29)
  1. CAMPTO [Suspect]
     Active Substance: IRINOTECAN
     Dosage: 170 MG, 1X/DAY
     Route: 041
     Dates: start: 20141204, end: 20141204
  2. ELPLAT [Suspect]
     Active Substance: OXALIPLATIN
     Dosage: 95 MG, 1X/DAY
     Route: 041
     Dates: start: 20141113, end: 20141113
  3. ELPLAT [Suspect]
     Active Substance: OXALIPLATIN
     Dosage: 95 MG, 1X/DAY
     Route: 041
     Dates: start: 20150115, end: 20150115
  4. ELPLAT [Suspect]
     Active Substance: OXALIPLATIN
     Dosage: 90 MG, 1X/DAY
     Route: 041
     Dates: start: 20141002, end: 20141002
  5. LEVOFOLINATE YAKULT [Suspect]
     Active Substance: LEVOLEUCOVORIN CALCIUM
     Dosage: 290 MG, 1X/DAY
     Route: 041
     Dates: start: 20141023, end: 20141023
  6. CAMPTO [Suspect]
     Active Substance: IRINOTECAN
     Dosage: 170 MG, 1X/DAY
     Route: 041
     Dates: start: 20150115, end: 20150115
  7. ELPLAT [Suspect]
     Active Substance: OXALIPLATIN
     Dosage: 95 MG, 1X/DAY
     Route: 041
     Dates: start: 20141023, end: 20141023
  8. ELPLAT [Suspect]
     Active Substance: OXALIPLATIN
     Dosage: 95 MG, 1X/DAY
     Route: 041
     Dates: start: 20150205, end: 20150205
  9. LEVOFOLINATE YAKULT [Suspect]
     Active Substance: LEVOLEUCOVORIN CALCIUM
     Dosage: 290 MG, 1X/DAY
     Route: 041
     Dates: start: 20141204, end: 20141204
  10. 5-FU [Concomitant]
     Active Substance: FLUOROURACIL
     Dosage: 3540 MG, CYCLIC (DAY 1-2)
     Dates: start: 20141002, end: 20150226
  11. CAMPTO [Suspect]
     Active Substance: IRINOTECAN
     Dosage: 170 MG, 1X/DAY
     Route: 041
     Dates: start: 20141023, end: 20141023
  12. CAMPTO [Suspect]
     Active Substance: IRINOTECAN
     Dosage: 170 MG, 1X/DAY
     Route: 041
     Dates: start: 20141113, end: 20141113
  13. CAMPTO [Suspect]
     Active Substance: IRINOTECAN
     Dosage: 170 MG, 1X/DAY
     Route: 041
     Dates: start: 20150205, end: 20150205
  14. ELPLAT [Suspect]
     Active Substance: OXALIPLATIN
     Dosage: 95 MG, 1X/DAY
     Route: 041
     Dates: start: 20141225, end: 20141225
  15. LEVOFOLINATE YAKULT [Suspect]
     Active Substance: LEVOLEUCOVORIN CALCIUM
     Indication: PANCREATIC CARCINOMA
     Dosage: 290 MG, 1X/DAY
     Route: 041
     Dates: start: 20140912, end: 20140912
  16. LEVOFOLINATE YAKULT [Suspect]
     Active Substance: LEVOLEUCOVORIN CALCIUM
     Dosage: 290 MG, 1X/DAY
     Route: 041
     Dates: start: 20141225, end: 20141225
  17. CAMPTO [Suspect]
     Active Substance: IRINOTECAN
     Dosage: 170 MG, UNK
     Dates: start: 20141225, end: 20141225
  18. CAMPTO [Suspect]
     Active Substance: IRINOTECAN
     Dosage: 170 MG, 1X/DAY
     Route: 041
     Dates: start: 20150226, end: 20150226
  19. ELPLAT [Suspect]
     Active Substance: OXALIPLATIN
     Indication: PANCREATIC CARCINOMA
     Dosage: 125 MG, 1X/DAY
     Route: 041
     Dates: start: 20140912, end: 20140912
  20. ELPLAT [Suspect]
     Active Substance: OXALIPLATIN
     Dosage: 95 MG, 1X/DAY
     Route: 041
     Dates: start: 20150226, end: 20150226
  21. CAMPTO [Suspect]
     Active Substance: IRINOTECAN
     Indication: PANCREATIC CARCINOMA
     Dosage: 220 MG, 1X/DAY
     Route: 041
     Dates: start: 20140912, end: 20140912
  22. CAMPTO [Suspect]
     Active Substance: IRINOTECAN
     Dosage: 170 MG, 1X/DAY
     Route: 041
     Dates: start: 20141002, end: 20141002
  23. ELPLAT [Suspect]
     Active Substance: OXALIPLATIN
     Dosage: 95 MG, 1X/DAY
     Route: 041
     Dates: start: 20141204, end: 20141204
  24. LEVOFOLINATE YAKULT [Suspect]
     Active Substance: LEVOLEUCOVORIN CALCIUM
     Dosage: 290 MG, 1X/DAY
     Route: 041
     Dates: start: 20141002, end: 20141002
  25. LEVOFOLINATE YAKULT [Suspect]
     Active Substance: LEVOLEUCOVORIN CALCIUM
     Dosage: 290 MG, 1X/DAY
     Route: 041
     Dates: start: 20150205, end: 20150205
  26. LEVOFOLINATE YAKULT [Suspect]
     Active Substance: LEVOLEUCOVORIN CALCIUM
     Dosage: 290 MG, 1X/DAY
     Route: 041
     Dates: start: 20141113, end: 20141113
  27. LEVOFOLINATE YAKULT [Suspect]
     Active Substance: LEVOLEUCOVORIN CALCIUM
     Dosage: 290 MG, 1X/DAY
     Route: 041
     Dates: start: 20150115, end: 20150115
  28. 5-FU [Concomitant]
     Active Substance: FLUOROURACIL
     Indication: PANCREATIC CARCINOMA
     Dosage: 3550 MG, CYCLIC (DAY 1-2)
     Dates: start: 20140912
  29. LEVOFOLINATE YAKULT [Suspect]
     Active Substance: LEVOLEUCOVORIN CALCIUM
     Dosage: 290 MG, 1X/DAY
     Route: 041
     Dates: start: 20150226, end: 20150226

REACTIONS (11)
  - Fatigue [Unknown]
  - Pain [Unknown]
  - Death [Fatal]
  - Neutrophil count decreased [Unknown]
  - Nausea [Unknown]
  - Peripheral sensory neuropathy [Unknown]
  - Disease progression [Unknown]
  - White blood cell count decreased [Unknown]
  - Pyrexia [Unknown]
  - Decreased appetite [Unknown]
  - Pancreatic carcinoma [Unknown]

NARRATIVE: CASE EVENT DATE: 20140919
